FAERS Safety Report 5218054-1 (Version None)
Quarter: 2007Q1

REPORT INFORMATION
  Report Type: 
  Country: None (occurrence: None)
  Receive Date: 20061130
  Receipt Date: 20060614
  Transmission Date: 20070707
  Serious: Yes (Hospitalization)
  Sender: FDA-Public Use
  Company Number: US200601005334

PATIENT
  Age: 51 Year
  Sex: Female
  Weight: 93 kg

DRUGS (15)
  1. ZYPREXA [Suspect]
     Indication: SCHIZOPHRENIA
     Dosage: SEE IMAGE
     Dates: start: 20010515, end: 20010613
  2. ZYPREXA [Suspect]
     Indication: SCHIZOPHRENIA
     Dosage: SEE IMAGE
     Dates: start: 20010613, end: 20010713
  3. ZYPREXA [Suspect]
     Indication: SCHIZOPHRENIA
     Dosage: SEE IMAGE
     Dates: start: 20010713, end: 20030331
  4. ZYPREXA [Suspect]
     Indication: SCHIZOPHRENIA
     Dosage: SEE IMAGE
     Dates: end: 20040205
  5. ZYPREXA [Suspect]
     Indication: SCHIZOPHRENIA
     Dosage: SEE IMAGE
     Dates: start: 19970501, end: 20040610
  6. ZYPREXA [Suspect]
     Indication: SCHIZOPHRENIA
     Dosage: SEE IMAGE
     Dates: start: 20030331
  7. ZYPREXA [Suspect]
     Indication: SCHIZOPHRENIA
     Dosage: SEE IMAGE
     Dates: start: 20040205
  8. DESYREL [Concomitant]
  9. PREDNISONE TAB [Concomitant]
  10. LASIX [Concomitant]
  11. RAMIPRIL [Concomitant]
  12. LANOXIN [Concomitant]
  13. LIPITOR [Concomitant]
  14. LORAZEPAM [Concomitant]
  15. ABILIFY [Concomitant]

REACTIONS (3)
  - DIABETES MELLITUS NON-INSULIN-DEPENDENT [None]
  - PRESCRIBED OVERDOSE [None]
  - WEIGHT INCREASED [None]
